FAERS Safety Report 17398390 (Version 1)
Quarter: 2020Q1

REPORT INFORMATION
  Report Type: Spontaneous
  Country: US (occurrence: US)
  Receive Date: 20200210
  Receipt Date: 20200210
  Transmission Date: 20200409
  Serious: Yes (Other)
  Sender: FDA-Public Use
  Company Number: US-VAYAPHARMA-2018-US-012901

PATIENT
  Age: 7 Year
  Sex: Male

DRUGS (1)
  1. VAYARIN (NON-SPECIFIC) [Suspect]
     Active Substance: DOCONEXENT\ICOSAPENT\PHOSPHATIDYL SERINE
     Indication: ATTENTION DEFICIT/HYPERACTIVITY DISORDER
     Route: 048

REACTIONS (5)
  - Withdrawal syndrome [Unknown]
  - Fall [Unknown]
  - Headache [Unknown]
  - Head injury [Unknown]
  - Vision blurred [Unknown]
